FAERS Safety Report 4631077-6 (Version None)
Quarter: 2005Q2

REPORT INFORMATION
  Report Type: 
  Country: None (occurrence: None)
  Receive Date: 20050406
  Receipt Date: 20050406
  Transmission Date: 20051028
  Serious: Yes (Life-Threatening, Hospitalization)
  Sender: FDA-Public Use
  Company Number: None

PATIENT
  Age: 49 Year
  Sex: Female
  Weight: 92 kg

DRUGS (9)
  1. DILAUDID [Suspect]
     Indication: PAIN
     Dosage: VIT MG Q 6 MIN
  2. MULTI-VITAMIN [Concomitant]
  3. VITAMIN B COMPLEX CAP [Concomitant]
  4. CALCIUM + MAG [Concomitant]
  5. VIT E, C, B6, B1 [Concomitant]
  6. IBUPROFEN [Concomitant]
  7. MUCINEX [Concomitant]
  8. IRON [Concomitant]
  9. QUESTRAN [Concomitant]

REACTIONS (4)
  - CARDIO-RESPIRATORY ARREST [None]
  - CONDITION AGGRAVATED [None]
  - PAIN [None]
  - SOMNOLENCE [None]
